FAERS Safety Report 11785382 (Version 1)
Quarter: 2015Q4

REPORT INFORMATION
  Report Type: Spontaneous
  Country: US (occurrence: US)
  Receive Date: 20151130
  Receipt Date: 20151130
  Transmission Date: 20160305
  Serious: No
  Sender: FDA-Public Use
  Company Number: US-JNJFOC-20151012291

PATIENT
  Sex: Female
  Weight: 65.77 kg

DRUGS (3)
  1. TYLENOL EXTRA STRENGTH [Suspect]
     Active Substance: ACETAMINOPHEN
     Indication: ANALGESIC THERAPY
     Dosage: 2 CAPLETS EVERY 6 HOURS AS NEEDED
     Route: 048
  2. VITAMIN D [Concomitant]
     Active Substance: CHOLECALCIFEROL
     Indication: VITAMIN SUPPLEMENTATION
     Dosage: 1 A DAY SINCE 2 YEARS.
     Route: 065
  3. UNKNOWN MEDICATION FOR ATRIAL FIBRILLATION [Concomitant]
     Indication: ATRIAL FIBRILLATION
     Dosage: 1 A DAY SINCE 2 YEARS
     Route: 065

REACTIONS (2)
  - Expired product administered [Unknown]
  - Therapeutic response unexpected [Unknown]
